FAERS Safety Report 12398133 (Version 2)
Quarter: 2016Q2

REPORT INFORMATION
  Report Type: Report from Study
  Country: CO (occurrence: CO)
  Receive Date: 20160524
  Receipt Date: 20160603
  Transmission Date: 20160815
  Serious: Yes (Hospitalization)
  Sender: FDA-Public Use
  Company Number: PHHY2016CO067391

PATIENT
  Sex: Female
  Weight: 53 kg

DRUGS (3)
  1. FOLIC ACID. [Concomitant]
     Active Substance: FOLIC ACID
     Indication: BONE DISORDER
     Dosage: 5 MG, QD
     Route: 048
  2. ENALAPRIL [Concomitant]
     Active Substance: ENALAPRIL
     Indication: BLOOD PRESSURE ABNORMAL
     Dosage: 5 MG, QD
     Route: 048
  3. EXJADE [Suspect]
     Active Substance: DEFERASIROX
     Indication: SICKLE CELL ANAEMIA
     Dosage: 20 MG/KG, QD (500 MG BID)
     Route: 048
     Dates: start: 20120210

REACTIONS (5)
  - Headache [Recovering/Resolving]
  - Dizziness [Unknown]
  - Vomiting [Unknown]
  - Haemoglobin decreased [Recovering/Resolving]
  - Depressed mood [Recovering/Resolving]
